FAERS Safety Report 5213209-4 (Version None)
Quarter: 2007Q1

REPORT INFORMATION
  Report Type: 
  Country: None (occurrence: None)
  Receive Date: 20070119
  Receipt Date: 20070118
  Transmission Date: 20070707
  Serious: Yes (Other)
  Sender: FDA-Public Use
  Company Number: AU-GLAXOSMITHKLINE-B0454695A

PATIENT
  Sex: Male

DRUGS (7)
  1. AVANDIA [Suspect]
     Indication: DRUG USE FOR UNKNOWN INDICATION
  2. AMARYL [Concomitant]
  3. DIABEX [Concomitant]
  4. UNKNOWN MEDICATION [Concomitant]
  5. PANTOPRAZOLE SODIUM [Concomitant]
  6. TRITACE [Concomitant]
  7. ZOCOR [Concomitant]

REACTIONS (3)
  - ABDOMINAL PAIN [None]
  - NAUSEA [None]
  - PANCREATITIS [None]
